FAERS Safety Report 9857578 (Version 3)
Quarter: 2014Q3

REPORT INFORMATION
  Report Type: Spontaneous
  Country: CN (occurrence: CN)
  Receive Date: 20140131
  Receipt Date: 20140722
  Transmission Date: 20150326
  Serious: Yes (Other)
  Sender: FDA-Public Use
  Company Number: CN-ORION CORPORATION ORION PHARMA-ENT 2014-0018

PATIENT
  Age: 76 Year
  Sex: Male

DRUGS (3)
  1. COMTAN [Suspect]
     Active Substance: ENTACAPONE
     Dosage: STRENGTH: 200 MG
     Route: 048
     Dates: end: 20140122
  2. COMTAN [Suspect]
     Active Substance: ENTACAPONE
     Indication: PARKINSON^S DISEASE
     Dosage: STRENGTH: 200 MG
     Route: 048
     Dates: start: 20100101
  3. COMTAN [Suspect]
     Active Substance: ENTACAPONE
     Dosage: STRENGTH: 200 MG
     Route: 048
     Dates: start: 201401

REACTIONS (14)
  - Drug ineffective [Not Recovered/Not Resolved]
  - Fatigue [Not Recovered/Not Resolved]
  - Product quality issue [Unknown]
  - Wrong technique in drug usage process [Unknown]
  - Muscle spasms [Unknown]
  - Lethargy [Unknown]
  - Coma [Unknown]
  - Muscle rigidity [Unknown]
  - Inflammation [Unknown]
  - Altered state of consciousness [Not Recovered/Not Resolved]
  - Intentional product misuse [Unknown]
  - Product physical issue [Unknown]
  - Therapy cessation [Unknown]
  - White blood cell count increased [Unknown]

NARRATIVE: CASE EVENT DATE: 201001
